FAERS Safety Report 4470104-6 (Version None)
Quarter: 2004Q3

REPORT INFORMATION
  Report Type: 
  Country: None (occurrence: None)
  Receive Date: 20040910
  Receipt Date: 20040707
  Transmission Date: 20050211
  Serious: No
  Sender: FDA-Public Use
  Company Number: 2004222766US

PATIENT
  Age: 56 Year
  Sex: Female
  Weight: 58.5 kg

DRUGS (5)
  1. BEXTRA [Suspect]
     Indication: OSTEOARTHRITIS
     Dosage: 10 MG
     Dates: start: 20040701
  2. AXID [Concomitant]
  3. NEXIUM [Concomitant]
  4. QUININE (QUININE) [Concomitant]
  5. ALBUTEROL (SALBUTAMOL) INHALER [Concomitant]

REACTIONS (3)
  - ABDOMINAL PAIN UPPER [None]
  - CONSTIPATION [None]
  - IRRITABLE BOWEL SYNDROME [None]
